FAERS Safety Report 9740078 (Version 4)
Quarter: 2015Q3

REPORT INFORMATION
  Report Type: Report from Study
  Country: JP (occurrence: JP)
  Receive Date: 20131209
  Receipt Date: 20150924
  Transmission Date: 20151125
  Serious: Yes (Hospitalization)
  Sender: FDA-Public Use
  Company Number: JP-GLAXOSMITHKLINE-B0932697A

PATIENT
  Age: 81 Year
  Sex: Male
  Weight: 58 kg

DRUGS (2)
  1. UNKNOWN DRUG [Concomitant]
     Active Substance: UNSPECIFIED INGREDIENT
     Indication: GASTROOESOPHAGEAL REFLUX DISEASE
     Route: 048
  2. PAZOPANIB [Suspect]
     Active Substance: PAZOPANIB
     Indication: LIPOSARCOMA
     Route: 048
     Dates: start: 20130705, end: 20130731

REACTIONS (3)
  - Hyponatraemia [Recovered/Resolved]
  - Platelet count decreased [Recovered/Resolved]
  - Hypertension [Recovered/Resolved]

NARRATIVE: CASE EVENT DATE: 20130711
